FAERS Safety Report 6701716-4 (Version None)
Quarter: 2010Q2

REPORT INFORMATION
  Report Type: 
  Country: None (occurrence: None)
  Receive Date: 20100429
  Receipt Date: 20100419
  Transmission Date: 20101027
  Serious: Yes (Other)
  Sender: FDA-Public Use
  Company Number: PHHY2010IL24753

PATIENT
  Sex: Female

DRUGS (1)
  1. OCTREOTIDE ACETATE [Suspect]
     Indication: HYPOGLYCAEMIA

REACTIONS (5)
  - APOPTOSIS [None]
  - DRUG INEFFECTIVE [None]
  - HYPOGLYCAEMIA [None]
  - PANCREATECTOMY [None]
  - PANCREATIC ISLETS HYPERPLASIA [None]
